FAERS Safety Report 8262081-7 (Version None)
Quarter: 2012Q2

REPORT INFORMATION
  Report Type: 
  Country: None (occurrence: None)
  Receive Date: 20120405
  Receipt Date: 20120330
  Transmission Date: 20120825
  Serious: Yes (Hospitalization, Other)
  Sender: FDA-Public Use
  Company Number: PHHY2012DE028113

PATIENT
  Sex: Male
  Weight: 82 kg

DRUGS (9)
  1. CALCIUM CHANNEL BLOCKERS [Concomitant]
     Dosage: UNK
     Dates: start: 20100823
  2. ASPIRIN [Concomitant]
     Indication: MULTIPLE SCLEROSIS
     Dosage: 100 MG/D
     Route: 048
     Dates: start: 20000101
  3. PLATELET AGGREGATION INHIBITORS [Concomitant]
  4. DURANIFIN [Concomitant]
     Dosage: 20 MG, UNK
     Route: 048
     Dates: start: 19970415
  5. METOPROLOL SUCCINATE [Concomitant]
     Dosage: 47.5 MG, UNK
     Route: 048
     Dates: start: 20000808
  6. RASILEZ [Suspect]
     Indication: HYPERTENSION
     Dosage: 150 MG/D
     Route: 048
     Dates: start: 20090422, end: 20110809
  7. DIOVAN HCT [Suspect]
     Dosage: UNK
     Route: 048
     Dates: start: 20081209
  8. TAMSULOSIN HCL [Concomitant]
     Indication: BENIGN PROSTATIC HYPERPLASIA
     Dosage: 0.4 MG/D
     Route: 048
     Dates: start: 20070916
  9. HMG COA REDUCTASE INHIBITORS [Concomitant]

REACTIONS (5)
  - C-REACTIVE PROTEIN INCREASED [None]
  - CAROTID ARTERY STENOSIS [None]
  - DYSPNOEA [None]
  - BRONCHIAL CARCINOMA [None]
  - LEFT VENTRICULAR HYPERTROPHY [None]
